FAERS Safety Report 9116704 (Version 3)
Quarter: 2013Q1

REPORT INFORMATION
  Report Type: Spontaneous
  Country: US (occurrence: US)
  Receive Date: 20130225
  Receipt Date: 20130305
  Transmission Date: 20140127
  Serious: Yes (Hospitalization, Other)
  Sender: FDA-Public Use
  Company Number: US-PFIZER INC-2013065007

PATIENT
  Age: 69 Year
  Sex: Male
  Weight: 75.74 kg

DRUGS (6)
  1. LIPITOR [Suspect]
     Indication: BLOOD CHOLESTEROL INCREASED
     Dosage: 40 MG, DAILY
     Dates: end: 20121016
  2. LIPITOR [Suspect]
     Dosage: 40 MG, 1X/DAY
     Dates: start: 2012
  3. ATORVASTATIN CALCIUM [Suspect]
     Indication: BLOOD CHOLESTEROL INCREASED
     Dosage: 40 MG, DAILY
     Dates: start: 201210, end: 2012
  4. RAMIPRIL [Suspect]
     Indication: CARDIAC DISORDER
     Dosage: 5 MG, DAILY IN THE MORNING
  5. METOPROLOL TARTRATE [Suspect]
     Indication: CARDIAC DISORDER
     Dosage: UNK, DAILY
  6. BABY ASPIRIN [Suspect]
     Dosage: UNK

REACTIONS (3)
  - Dehydration [Recovered/Resolved]
  - Thrombosis [Unknown]
  - Renal disorder [Unknown]
